FAERS Safety Report 15196908 (Version 7)
Quarter: 2019Q4

REPORT INFORMATION
  Report Type: Report from Study
  Country: JP (occurrence: JP)
  Receive Date: 20180725
  Receipt Date: 20191031
  Transmission Date: 20200122
  Serious: Yes (Hospitalization)
  Sender: FDA-Public Use
  Company Number: JP-PFIZER INC-2017424786

PATIENT
  Age: 71 Year
  Sex: Male

DRUGS (7)
  1. CALONAL [Concomitant]
     Active Substance: ACETAMINOPHEN
     Dosage: UNK
     Route: 048
     Dates: start: 20170725
  2. MICARDIS [Concomitant]
     Active Substance: TELMISARTAN
     Route: 048
  3. CELECOX [Concomitant]
     Active Substance: CELECOXIB
     Route: 048
  4. XELJANZ [Suspect]
     Active Substance: TOFACITINIB CITRATE
     Indication: RHEUMATOID ARTHRITIS
     Dosage: 5 MG, 2X/DAY
     Route: 048
     Dates: start: 20160328, end: 20181108
  5. BAKTAR [Concomitant]
     Active Substance: SULFAMETHOXAZOLE\TRIMETHOPRIM
     Indication: ANTIFUNGAL PROPHYLAXIS
     Dosage: UNK
  6. ISCOTIN [Concomitant]
     Active Substance: ISONIAZID
     Indication: ANTIBIOTIC PROPHYLAXIS
     Dosage: UNK
  7. REBAMIPIDE [Concomitant]
     Active Substance: REBAMIPIDE
     Route: 048

REACTIONS (3)
  - Rheumatoid arthritis [Recovered/Resolved with Sequelae]
  - Extremity necrosis [Recovered/Resolved]
  - Herpes zoster [Recovered/Resolved]

NARRATIVE: CASE EVENT DATE: 20170926
